FAERS Safety Report 6596549-6 (Version None)
Quarter: 2010Q1

REPORT INFORMATION
  Report Type: 
  Country: None (occurrence: None)
  Receive Date: 20100222
  Receipt Date: 20100222
  Transmission Date: 20100710
  Serious: No
  Sender: FDA-Public Use
  Company Number: None

PATIENT
  Sex: Female

DRUGS (2)
  1. AVELOX [Suspect]
     Indication: SINUSITIS
     Dates: start: 20100111
  2. AVELOX [Suspect]
     Indication: SINUSITIS
     Dates: start: 20100121

REACTIONS (3)
  - DYSPHAGIA [None]
  - SWELLING FACE [None]
  - URTICARIA [None]
